FAERS Safety Report 7818116-6 (Version None)
Quarter: 2011Q4

REPORT INFORMATION
  Report Type: 
  Country: None (occurrence: None)
  Receive Date: 20111017
  Receipt Date: 20111003
  Transmission Date: 20120403
  Serious: No
  Sender: FDA-Public Use
  Company Number: US-B.I. PHARMACEUTICALS,INC./RIDGEFIELD-2010-BP-06196BP

PATIENT
  Age: 79 Year
  Sex: Male

DRUGS (7)
  1. VIREAD [Concomitant]
     Indication: HIV INFECTION
     Route: 048
  2. VITAMIN D [Concomitant]
     Indication: SUPPLEMENTATION THERAPY
     Route: 048
  3. FLOMAX [Suspect]
     Indication: POLLAKIURIA
     Dosage: 0.4 MG
     Route: 048
     Dates: start: 20100501, end: 20110701
  4. EPIVIR [Concomitant]
     Indication: HIV INFECTION
     Route: 048
  5. VESICARE [Concomitant]
     Indication: POLLAKIURIA
     Route: 048
  6. GLUCOSAMINE CHONDROITIN [Concomitant]
     Indication: OSTEOARTHRITIS
     Route: 048
  7. LEXIVA [Concomitant]
     Indication: HIV INFECTION
     Route: 048

REACTIONS (8)
  - NEUROPATHY PERIPHERAL [None]
  - BACK PAIN [None]
  - NASAL CONGESTION [None]
  - PRURITUS [None]
  - HYPOKINESIA [None]
  - INSOMNIA [None]
  - ABDOMINAL DISCOMFORT [None]
  - ERECTILE DYSFUNCTION [None]
